FAERS Safety Report 15880726 (Version 2)
Quarter: 2019Q1

REPORT INFORMATION
  Report Type: Spontaneous
  Country: US (occurrence: US)
  Receive Date: 20190128
  Receipt Date: 20190318
  Transmission Date: 20190417
  Serious: No
  Sender: FDA-Public Use
  Company Number: US-BAUSCH-BL-2019-001827

PATIENT
  Age: 64 Year
  Sex: Female

DRUGS (1)
  1. LUMIFY [Suspect]
     Active Substance: BRIMONIDINE TARTRATE
     Indication: OCULAR HYPERAEMIA
     Dosage: 1 DROP IN EACH EYE AS NEEDED (STARTED IN EITHER DEC/2018 OR JAN/2019)
     Route: 047
     Dates: end: 20190116

REACTIONS (2)
  - Out of specification test results [Unknown]
  - Drug ineffective [Unknown]
